FAERS Safety Report 23926297 (Version 1)
Quarter: 2024Q2

REPORT INFORMATION
  Report Type: Spontaneous
  Country: BR (occurrence: BR)
  Receive Date: 20240531
  Receipt Date: 20240531
  Transmission Date: 20240716
  Serious: Yes (Other)
  Sender: FDA-Public Use
  Company Number: BR-JNJFOC-20240572524

PATIENT
  Sex: Male

DRUGS (3)
  1. PREZISTA [Suspect]
     Active Substance: DARUNAVIR ETHANOLATE
     Indication: Product used for unknown indication
     Route: 048
  2. TENOFOVIR [Suspect]
     Active Substance: TENOFOVIR
     Indication: Product used for unknown indication
     Route: 050
  3. LAMIVUDINE [Suspect]
     Active Substance: LAMIVUDINE
     Indication: Product used for unknown indication
     Route: 050

REACTIONS (5)
  - Suicidal ideation [Unknown]
  - Gastrointestinal angiodysplasia [Unknown]
  - Abdominal discomfort [Unknown]
  - Abdominal pain [Unknown]
  - Diarrhoea [Unknown]
